FAERS Safety Report 6712243-2 (Version None)
Quarter: 2010Q2

REPORT INFORMATION
  Report Type: 
  Country: None (occurrence: None)
  Receive Date: 20100505
  Receipt Date: 20100504
  Transmission Date: 20101027
  Serious: Yes (Congenital Anomaly)
  Sender: FDA-Public Use
  Company Number: US-BRISTOL-MYERS SQUIBB COMPANY-15024839

PATIENT

DRUGS (1)
  1. EFAVIRENZ CAPS [Suspect]
     Route: 064

REACTIONS (1)
  - CONGENITAL ANOMALY [None]
